FAERS Safety Report 5558318-5 (Version None)
Quarter: 2007Q4

REPORT INFORMATION
  Report Type: 
  Country: None (occurrence: None)
  Receive Date: 20071214
  Receipt Date: 20071203
  Transmission Date: 20080405
  Serious: Yes (Hospitalization)
  Sender: FDA-Public Use
  Company Number: CA-PFIZER INC-2007099416

PATIENT
  Sex: Male
  Weight: 77.5 kg

DRUGS (6)
  1. SU-011,248 [Suspect]
     Indication: METASTATIC RENAL CELL CARCINOMA
  2. METOPROLOL [Concomitant]
  3. RABEPRAZOLE SODIUM [Concomitant]
  4. GAVISCON [Concomitant]
  5. ACETAMINOPHEN W/ CODEINE [Concomitant]
  6. METOCLOPRAMIDE [Concomitant]

REACTIONS (4)
  - FAECES DISCOLOURED [None]
  - LEUKOPENIA [None]
  - NEUTROPENIA [None]
  - VOMITING [None]
